FAERS Safety Report 19849297 (Version 1)
Quarter: 2021Q3

REPORT INFORMATION
  Report Type: Spontaneous
  Country: US (occurrence: US)
  Receive Date: 20210917
  Receipt Date: 20210917
  Transmission Date: 20211014
  Serious: No
  Sender: FDA-Public Use
  Company Number: US-ASTRAZENECA-2021A692034

PATIENT
  Age: 24050 Day
  Sex: Male

DRUGS (2)
  1. B12 INJECTIONS [Concomitant]
  2. FASENRA [Suspect]
     Active Substance: BENRALIZUMAB
     Indication: ASTHMA
     Route: 058

REACTIONS (9)
  - Dyspnoea [Unknown]
  - Cardiac disorder [Unknown]
  - Autonomic nervous system imbalance [Unknown]
  - Vitamin B12 abnormal [Unknown]
  - Pulmonary sarcoidosis [Unknown]
  - Weight decreased [Unknown]
  - Blood potassium increased [Unknown]
  - Pain [Unknown]
  - Device use issue [Unknown]

NARRATIVE: CASE EVENT DATE: 20210811
